FAERS Safety Report 6142167-3 (Version None)
Quarter: 2009Q2

REPORT INFORMATION
  Report Type: 
  Country: None (occurrence: None)
  Receive Date: 20090402
  Receipt Date: 20090326
  Transmission Date: 20091009
  Serious: Yes (Other)
  Sender: FDA-Public Use
  Company Number: CH-GENENTECH-277106

PATIENT
  Sex: Female

DRUGS (4)
  1. RAPTIVA [Suspect]
     Indication: PSORIASIS
     Dosage: UNK
     Dates: start: 20041201
  2. FERRITILL (UNK INGREDIENTS) [Concomitant]
     Indication: BLOOD IRON INCREASED
     Dosage: UNK
  3. IRON FORMULA [Concomitant]
     Indication: DRUG USE FOR UNKNOWN INDICATION
     Dosage: UNK
  4. TETANUS VACCINE [Concomitant]
     Indication: DRUG USE FOR UNKNOWN INDICATION
     Dosage: UNK

REACTIONS (3)
  - BLOOD IRON INCREASED [None]
  - INFLAMMATION [None]
  - PLATELET COUNT DECREASED [None]
